FAERS Safety Report 8859409 (Version 6)
Quarter: 2013Q2

REPORT INFORMATION
  Report Type: Spontaneous
  Country: US (occurrence: US)
  Receive Date: 20121024
  Receipt Date: 20130524
  Transmission Date: 20140414
  Serious: Yes (Hospitalization, Other)
  Sender: FDA-Public Use
  Company Number: US-009507513-1202USA00849

PATIENT
  Sex: Female

DRUGS (7)
  1. FOSAMAX [Suspect]
     Indication: OSTEOPOROSIS PROPHYLAXIS
     Dosage: 10 MG, QD
     Route: 048
     Dates: start: 19980917, end: 200110
  2. FOSAMAX [Suspect]
     Dosage: 70 MG, QW
     Route: 048
     Dates: start: 200110, end: 201012
  3. CALCIUM (UNSPECIFIED) [Concomitant]
     Dosage: 600 MG, BID
     Route: 048
     Dates: start: 1985
  4. VITAMIN D (UNSPECIFIED) [Concomitant]
     Indication: VITAMIN SUPPLEMENTATION
     Dosage: 1000 MG, QD
     Route: 048
     Dates: start: 1985
  5. ASCORBIC ACID [Concomitant]
     Indication: VITAMIN SUPPLEMENTATION
     Dosage: UNK
     Dates: start: 1985
  6. VITAMIN B COMPLEX [Concomitant]
     Indication: VITAMIN SUPPLEMENTATION
     Dosage: UNK
     Dates: start: 1985
  7. ALLEGRA [Concomitant]
     Indication: HYPERSENSITIVITY

REACTIONS (18)
  - Femur fracture [Recovering/Resolving]
  - Intramedullary rod insertion [Unknown]
  - Radius fracture [Unknown]
  - Open reduction of fracture [Unknown]
  - Breast cancer [Unknown]
  - Mastectomy [Unknown]
  - Skin cancer [Unknown]
  - Wrist fracture [Unknown]
  - Fall [Unknown]
  - Fall [Unknown]
  - Hypertension [Unknown]
  - Blood cholesterol increased [Unknown]
  - Muscular weakness [Unknown]
  - Osteopenia [Unknown]
  - Spinal column stenosis [Unknown]
  - Ulna fracture [Unknown]
  - Hysterectomy [Unknown]
  - Pain in extremity [Not Recovered/Not Resolved]
